FAERS Safety Report 17791926 (Version 9)
Quarter: 2021Q4

REPORT INFORMATION
  Report Type: Spontaneous
  Country: US (occurrence: US)
  Receive Date: 20200515
  Receipt Date: 20211001
  Transmission Date: 20220303
  Serious: Yes (Hospitalization)
  Sender: FDA-Public Use
  Company Number: US-PFIZER INC-2020194576

PATIENT
  Age: 65 Year
  Sex: Female
  Weight: 107.02 kg

DRUGS (4)
  1. IBRANCE [Suspect]
     Active Substance: PALBOCICLIB
     Indication: Breast cancer female
     Dosage: 125 MG
     Dates: start: 201809
  2. IBRANCE [Suspect]
     Active Substance: PALBOCICLIB
     Dosage: 125 MG
     Dates: start: 20201207
  3. IBRANCE [Suspect]
     Active Substance: PALBOCICLIB
     Dosage: 125 MG
     Dates: start: 20210330, end: 20210427
  4. LETROZOLE [Concomitant]
     Active Substance: LETROZOLE
     Dosage: 2.5 MG
     Dates: start: 201809

REACTIONS (16)
  - Intentional product misuse [Unknown]
  - Throat tightness [Recovered/Resolved]
  - Breath sounds abnormal [Not Recovered/Not Resolved]
  - Posture abnormal [Not Recovered/Not Resolved]
  - Tremor [Unknown]
  - Weight increased [Not Recovered/Not Resolved]
  - Allergic reaction to excipient [Not Recovered/Not Resolved]
  - Drug hypersensitivity [Not Recovered/Not Resolved]
  - Productive cough [Unknown]
  - Back pain [Unknown]
  - Road traffic accident [Unknown]
  - Abdominal discomfort [Unknown]
  - Tumour marker increased [Unknown]
  - Exposure to SARS-CoV-2 [Unknown]
  - Arthralgia [Unknown]
  - Pain [Recovered/Resolved]

NARRATIVE: CASE EVENT DATE: 20210301
